FAERS Safety Report 7007555-1 (Version None)
Quarter: 2010Q3

REPORT INFORMATION
  Report Type: 
  Country: None (occurrence: None)
  Receive Date: 20100922
  Receipt Date: 20100915
  Transmission Date: 20110219
  Serious: Yes (Hospitalization, Other)
  Sender: FDA-Public Use
  Company Number: AU-PFIZER INC-2010097561

PATIENT
  Age: 65 Year
  Sex: Female
  Weight: 83 kg

DRUGS (5)
  1. SUTENT [Suspect]
     Indication: RENAL CELL CARCINOMA
     Dosage: 50 MG, 1X/DAY, DAYS 1 TO 28
     Route: 048
     Dates: start: 20100719, end: 20100723
  2. ACCURETIC [Concomitant]
     Indication: HYPERTENSION
     Dosage: 12.5/20 1X/DAY
     Route: 048
  3. ATENOLOL [Concomitant]
     Indication: HYPERTENSION
     Dosage: 50 MG, 1X/DAY
     Route: 048
  4. CLEXANE [Concomitant]
     Indication: RENAL VEIN THROMBOSIS
  5. CLEXANE [Concomitant]
     Indication: VENA CAVA THROMBOSIS

REACTIONS (2)
  - HEADACHE [None]
  - HYPERTENSION [None]
